FAERS Safety Report 11116122 (Version 2)
Quarter: 2015Q2

REPORT INFORMATION
  Report Type: Spontaneous
  Country: US (occurrence: US)
  Receive Date: 20150515
  Receipt Date: 20150626
  Transmission Date: 20150821
  Serious: Yes (Other)
  Sender: FDA-Public Use
  Company Number: US-PFIZER INC-2015158383

PATIENT
  Age: 68 Year
  Sex: Female
  Weight: 127 kg

DRUGS (3)
  1. LYRICA [Suspect]
     Active Substance: PREGABALIN
     Indication: NEUROPATHY PERIPHERAL
     Dosage: 300 MG, 2X/DAY
     Dates: start: 2006
  2. WARFARIN [Suspect]
     Active Substance: WARFARIN
     Indication: HEART RATE INCREASED
     Dosage: 7.5 MG, ALTERNATE DAY (MWF)
     Dates: start: 2006
  3. WARFARIN [Suspect]
     Active Substance: WARFARIN
     Dosage: 10 MG, ALTERNATE DAY
     Dates: start: 2006

REACTIONS (2)
  - Blood disorder [Unknown]
  - Polyp [Unknown]

NARRATIVE: CASE EVENT DATE: 2006
